FAERS Safety Report 6932939-7 (Version None)
Quarter: 2010Q3

REPORT INFORMATION
  Report Type: 
  Country: None (occurrence: None)
  Receive Date: 20100817
  Receipt Date: 20100802
  Transmission Date: 20110219
  Serious: Yes (Hospitalization, Other)
  Sender: FDA-Public Use
  Company Number: 2009AC000277

PATIENT
  Age: 75 Year
  Sex: Female
  Weight: 65.5448 kg

DRUGS (18)
  1. DIGOXIN [Suspect]
     Dosage: 0.25 MG;QD;PO
     Route: 048
     Dates: start: 20080421, end: 20080501
  2. DIGOXIN [Suspect]
     Dosage: 0.25 MG;QD;PO
     Route: 048
     Dates: start: 20080101
  3. COREG [Concomitant]
  4. LOTREL [Concomitant]
  5. PROVIGIL [Concomitant]
  6. MICARDIS [Concomitant]
  7. OMEPRAZOLE [Concomitant]
  8. AMLODIPINE [Concomitant]
  9. VYTORIN [Concomitant]
  10. DIAZEPAM [Concomitant]
  11. REGLAN [Concomitant]
  12. ASPIRIN [Concomitant]
  13. PLAVIX [Concomitant]
  14. ISOSORBIDE [Concomitant]
  15. EVISTA [Concomitant]
  16. METFORMIN HCL [Concomitant]
  17. CARDIZEM [Concomitant]
  18. PROVIGIL [Concomitant]

REACTIONS (23)
  - ANXIETY [None]
  - ARRHYTHMIA [None]
  - ARTERIOSCLEROSIS [None]
  - ATRIAL FIBRILLATION [None]
  - BALANCE DISORDER [None]
  - BRADYCARDIA [None]
  - CHEST PAIN [None]
  - CHOLELITHIASIS [None]
  - COLITIS ISCHAEMIC [None]
  - CORONARY ARTERY DISEASE [None]
  - DECREASED APPETITE [None]
  - DIVERTICULUM [None]
  - DIZZINESS [None]
  - ECONOMIC PROBLEM [None]
  - GASTRITIS [None]
  - INJURY [None]
  - LOSS OF CONSCIOUSNESS [None]
  - MALAISE [None]
  - MESENTERIC ARTERY STENOSIS [None]
  - NAUSEA [None]
  - SYNCOPE [None]
  - VOMITING [None]
  - WEIGHT DECREASED [None]
